FAERS Safety Report 14411722 (Version 2)
Quarter: 2018Q4

REPORT INFORMATION
  Report Type: Report from Study
  Country: CN (occurrence: CN)
  Receive Date: 20180119
  Receipt Date: 20181015
  Transmission Date: 20190204
  Serious: Yes (Hospitalization)
  Sender: FDA-Public Use
  Company Number: CN-ROCHE-2029742

PATIENT
  Age: 54 Year
  Sex: Female
  Weight: 72 kg

DRUGS (12)
  1. POTASSIUM CHLORIDE. [Concomitant]
     Active Substance: POTASSIUM CHLORIDE
     Dosage: LIQUID
     Route: 065
     Dates: start: 20171126, end: 20171126
  2. SODIUM CHLORIDE. [Concomitant]
     Active Substance: SODIUM CHLORIDE
     Indication: HAEMORRHAGE
     Route: 065
     Dates: start: 20171119, end: 20171119
  3. CARBAZOCHROME SODIUM SULFONATE [Concomitant]
     Active Substance: CARBAZOCHROME SODIUM SULFONATE
     Indication: HAEMORRHAGE
     Route: 065
     Dates: start: 20171120, end: 20171128
  4. POLYENE PHOSPHATIDYLCHOLINE [Concomitant]
     Active Substance: PHOSPHOLIPID
     Indication: LIVER DISORDER
     Route: 065
     Dates: start: 20171120, end: 20171128
  5. AMLODIPINE BESYLATE. [Concomitant]
     Active Substance: AMLODIPINE BESYLATE
     Indication: HYPERTENSION
     Route: 065
     Dates: start: 20100830
  6. LEVOFLOXACIN. [Concomitant]
     Active Substance: LEVOFLOXACIN
     Indication: INFLAMMATION
     Route: 065
     Dates: start: 20171120, end: 20171128
  7. NAPROXEN. [Concomitant]
     Active Substance: NAPROXEN
     Indication: PAIN
     Route: 065
  8. ESSENTIALE (CHINA) [Concomitant]
     Route: 065
     Dates: start: 20171128, end: 20171222
  9. TRANEXAMIC ACID. [Concomitant]
     Active Substance: TRANEXAMIC ACID
     Indication: HAEMORRHAGE
     Route: 065
     Dates: start: 20171119, end: 20171119
  10. TRASTUZUMAB EMTANSINE [Suspect]
     Active Substance: ADO-TRASTUZUMAB EMTANSINE
     Indication: HER-2 POSITIVE BREAST CANCER
     Dosage: UNIT DOSE AS PER PROTOCOL?DATE OF MOST RECENT DOSE (259.2 MG) OF TRASTUZUMAB EMTANSINE PRIOR TO AE O
     Route: 042
     Dates: start: 20170814
  11. CEFIXIME. [Concomitant]
     Active Substance: CEFIXIME
     Indication: PYREXIA
     Dosage: DISPERSIBLE TABLETS
     Route: 065
     Dates: start: 20171020, end: 20171022
  12. MOXIFLOXACIN. [Concomitant]
     Active Substance: MOXIFLOXACIN
     Route: 065
     Dates: start: 20171128, end: 20171222

REACTIONS (1)
  - Pneumonia bacterial [Recovered/Resolved]

NARRATIVE: CASE EVENT DATE: 20171109
